FAERS Safety Report 5268131-4 (Version None)
Quarter: 2007Q1

REPORT INFORMATION
  Report Type: 
  Country: None (occurrence: None)
  Receive Date: 20070319
  Receipt Date: 20070306
  Transmission Date: 20070707
  Serious: Yes (Other)
  Sender: FDA-Public Use
  Company Number: US-ELI_LILLY_AND_COMPANY-US_0501109898

PATIENT
  Age: 57 Year

DRUGS (1)
  1. ZYPREXA [Suspect]
     Indication: BIPOLAR DISORDER
     Dosage: UNK, UNKNOWN
     Dates: start: 20000627

REACTIONS (3)
  - DIABETES MELLITUS [None]
  - METABOLIC SYNDROME [None]
  - MYOCARDIAL INFARCTION [None]
